FAERS Safety Report 10645671 (Version 1)
Quarter: 2014Q4

REPORT INFORMATION
  Report Type: Spontaneous
  Country: FI (occurrence: FI)
  Receive Date: 20141211
  Receipt Date: 20141211
  Transmission Date: 20150529
  Serious: Yes (Hospitalization)
  Sender: FDA-Public Use
  Company Number: FI-009507513-1412FIN004524

PATIENT
  Sex: Female

DRUGS (3)
  1. PROPOFOL. [Concomitant]
     Active Substance: PROPOFOL
  2. ESMERON [Suspect]
     Active Substance: ROCURONIUM BROMIDE
     Dosage: UNK
     Dates: start: 20141110
  3. FENTANYL. [Concomitant]
     Active Substance: FENTANYL

REACTIONS (2)
  - Urticaria [Recovered/Resolved]
  - Rash macular [Recovered/Resolved]

NARRATIVE: CASE EVENT DATE: 20141110
